FAERS Safety Report 18785938 (Version 2)
Quarter: 2025Q1

REPORT INFORMATION
  Report Type: Spontaneous
  Country: US (occurrence: US)
  Receive Date: 20210125
  Receipt Date: 20250301
  Transmission Date: 20250408
  Serious: No
  Sender: ROCHE
  Company Number: US-ROCHE-2622159

PATIENT

DRUGS (1)
  1. RITUXAN HYCELA [Suspect]
     Active Substance: HYALURONIDASE (HUMAN RECOMBINANT)\RITUXIMAB
     Indication: Product used for unknown indication
     Route: 065

REACTIONS (3)
  - Blood creatinine increased [Unknown]
  - Performance status decreased [Unknown]
  - Condition aggravated [Unknown]
